FAERS Safety Report 18757867 (Version 1)
Quarter: 2021Q1

REPORT INFORMATION
  Report Type: Spontaneous
  Country: FR (occurrence: FR)
  Receive Date: 20210119
  Receipt Date: 20210119
  Transmission Date: 20210419
  Serious: Yes (Death)
  Sender: FDA-Public Use
  Company Number: FR-TEVA-2021-FR-1869487

PATIENT
  Age: 46 Year
  Sex: Female

DRUGS (3)
  1. TRAMADOL BASE [Suspect]
     Active Substance: TRAMADOL
     Indication: INTENTIONAL PRODUCT MISUSE
     Dosage: UNKNOWN
     Route: 065
     Dates: end: 2019
  2. COCAINE [Concomitant]
     Active Substance: COCAINE
     Dosage: UNKNOWN
     Route: 065
     Dates: end: 2019
  3. ALCOOL [Suspect]
     Active Substance: ALCOHOL
     Dosage: UNKNOWN
     Route: 048
     Dates: end: 2019

REACTIONS (1)
  - Poisoning deliberate [Fatal]
